FAERS Safety Report 22043592 (Version 1)
Quarter: 2023Q1

REPORT INFORMATION
  Report Type: Report from Study
  Country: US (occurrence: None)
  Receive Date: 20230228
  Receipt Date: 20230228
  Transmission Date: 20230417
  Serious: Yes (Other)
  Sender: FDA-Public Use
  Company Number: US-ROCHE-3062683

PATIENT
  Age: 63 Year
  Sex: Female

DRUGS (4)
  1. PLACEBO [Suspect]
     Active Substance: UNSPECIFIED INGREDIENT
     Indication: Invasive breast carcinoma
     Dosage: PATIENTS RECEIVE ATEZOLIZUMAB IV OVER 30-60 MINUTES ON DAY 1 OF CYCLE 1 AND DAYS 1 AND 22 OF SUBSEQU
     Route: 041
  2. PACLITAXEL [Suspect]
     Active Substance: PACLITAXEL
     Indication: Invasive breast carcinoma
     Route: 042
  3. PERTUZUMAB [Suspect]
     Active Substance: PERTUZUMAB
     Indication: Invasive breast carcinoma
     Dosage: LLOADING DOSE OF 840 MG FOLLWED BY MAINTENANCE DOS EOF 420 MG
     Route: 042
  4. TRASTUZUMAB [Suspect]
     Active Substance: TRASTUZUMAB
     Indication: Invasive breast carcinoma
     Dosage: LOADING DOSE OF 8 MG.KG FOLLOWED BY MAINTENANCE DOSE OF 6 MG.KG
     Route: 041

REACTIONS (3)
  - Hypertension [Unknown]
  - Hypertension [Unknown]
  - Dyspnoea [Unknown]

NARRATIVE: CASE EVENT DATE: 20200205
